FAERS Safety Report 7759518-6 (Version None)
Quarter: 2011Q3

REPORT INFORMATION
  Report Type: 
  Country: None (occurrence: None)
  Receive Date: 20110919
  Receipt Date: 20110919
  Transmission Date: 20111222
  Serious: Yes (Life-Threatening, Hospitalization)
  Sender: FDA-Public Use
  Company Number: None

PATIENT
  Age: 64 Year
  Sex: Male
  Weight: 103.41 kg

DRUGS (1)
  1. PROPOFOL [Suspect]

REACTIONS (2)
  - THROMBOSIS [None]
  - DELAYED RECOVERY FROM ANAESTHESIA [None]
